FAERS Safety Report 19912239 (Version 1)
Quarter: 2021Q4

REPORT INFORMATION
  Report Type: Spontaneous
  Country: US (occurrence: US)
  Receive Date: 20211004
  Receipt Date: 20211004
  Transmission Date: 20220303
  Serious: No
  Sender: FDA-Public Use
  Company Number: US-PFIZER INC-2021305793

PATIENT
  Age: 8 Year
  Sex: Male
  Weight: 24.49 kg

DRUGS (1)
  1. GENOTROPIN [Suspect]
     Active Substance: SOMATROPIN
     Indication: Noonan syndrome
     Dosage: UNK

REACTIONS (2)
  - Device mechanical issue [Unknown]
  - Incorrect dose administered by device [Unknown]
